FAERS Safety Report 7752924-5 (Version None)
Quarter: 2011Q3

REPORT INFORMATION
  Report Type: 
  Country: None (occurrence: None)
  Receive Date: 20110915
  Receipt Date: 20110912
  Transmission Date: 20111222
  Serious: Yes (Other)
  Sender: FDA-Public Use
  Company Number: AU-ABBOTT-11P-008-0849154-00

PATIENT
  Sex: Female

DRUGS (4)
  1. LAMIVUDINE + ZIDOVUDINE [Suspect]
  2. LOPINAVIR/RITONAVIR [Suspect]
     Indication: HIV INFECTION
  3. LOPINAVIR/RITONAVIR [Suspect]
  4. LAMIVUDINE + ZIDOVUDINE [Suspect]
     Indication: HIV INFECTION
     Route: 042

REACTIONS (2)
  - HYPERSENSITIVITY [None]
  - PREMATURE LABOUR [None]
